FAERS Safety Report 7995415-9 (Version None)
Quarter: 2011Q4

REPORT INFORMATION
  Report Type: 
  Country: None (occurrence: None)
  Receive Date: 20111220
  Receipt Date: 20111213
  Transmission Date: 20120403
  Serious: Yes (Other)
  Sender: FDA-Public Use
  Company Number: US-JNJFOC-2007319605

PATIENT
  Sex: Male

DRUGS (2)
  1. SUDAFED 24 HOUR [Suspect]
     Indication: PRODUCT USED FOR UNKNOWN INDICATION
     Dosage: DAILY DOSE TEXT: UNKNOWN
     Route: 048
     Dates: start: 20070506
  2. SUDAFED 24 HOUR [Suspect]
     Route: 048

REACTIONS (2)
  - OVERDOSE [None]
  - INCORRECT DRUG ADMINISTRATION DURATION [None]
